FAERS Safety Report 8421558-1 (Version None)
Quarter: 2012Q2

REPORT INFORMATION
  Report Type: 
  Country: None (occurrence: None)
  Receive Date: 20120605
  Receipt Date: 20120605
  Transmission Date: 20120825
  Serious: Yes (Other)
  Sender: FDA-Public Use
  Company Number: None

PATIENT
  Sex: Female
  Weight: 81.6475 kg

DRUGS (2)
  1. ZOFRAN [Suspect]
     Indication: NAUSEA
     Dosage: 4MG EVERY 6HRS AS NEEDED ORAL
     Route: 048
     Dates: start: 20120508, end: 20120513
  2. ZOFRAN [Suspect]
     Indication: VOMITING
     Dosage: 4MG EVERY 6HRS AS NEEDED ORAL
     Route: 048
     Dates: start: 20120508, end: 20120513

REACTIONS (5)
  - PAIN [None]
  - MATERNAL EXPOSURE DURING PREGNANCY [None]
  - TEMPOROMANDIBULAR JOINT SYNDROME [None]
  - JOINT SWELLING [None]
  - APHAGIA [None]
